FAERS Safety Report 16409207 (Version 1)
Quarter: 2019Q2

REPORT INFORMATION
  Report Type: Report from Study
  Country: GB (occurrence: GB)
  Receive Date: 20190610
  Receipt Date: 20190610
  Transmission Date: 20190711
  Serious: Yes (Death, Hospitalization)
  Sender: FDA-Public Use
  Company Number: GB-ROCHE-2328375

PATIENT

DRUGS (1)
  1. VENETOCLAX. [Suspect]
     Active Substance: VENETOCLAX
     Indication: CHRONIC LYMPHOCYTIC LEUKAEMIA
     Dosage: 20 MG ONCE A DAY (O.D.) TO 400 MG O.D.,
     Route: 048

REACTIONS (10)
  - Infection [Fatal]
  - Dyspnoea [Unknown]
  - Toxicity to various agents [Unknown]
  - Tumour lysis syndrome [Recovered/Resolved]
  - Febrile neutropenia [Unknown]
  - Tumour perforation [Unknown]
  - Liver function test abnormal [Unknown]
  - Haemorrhage [Unknown]
  - Hyperphosphataemia [Recovered/Resolved]
  - Blood calcium increased [Unknown]
